FAERS Safety Report 21925357 (Version 2)
Quarter: 2023Q1

REPORT INFORMATION
  Report Type: Other
  Country: GB (occurrence: GB)
  Receive Date: 20230130
  Receipt Date: 20230221
  Transmission Date: 20230418
  Serious: Yes (Other)
  Sender: FDA-Public Use
  Company Number: GB-MHRA-MED-202301161344021830-CLPSY

PATIENT
  Age: 39 Year
  Sex: Male

DRUGS (1)
  1. EMTRICITABINE\TENOFOVIR DISOPROXIL FUMARATE [Suspect]
     Active Substance: EMTRICITABINE\TENOFOVIR DISOPROXIL FUMARATE
     Indication: Prophylaxis against HIV infection
     Dosage: UNK (2 TABLETS  2-24 HOURS BEFORE SEX, THEN 1 TABELTS EVERY 24 HOURS UNTIL 48 HOURS AFTER LAST SEX)
     Route: 065

REACTIONS (1)
  - Gingival bleeding [Recovered/Resolved]
